FAERS Safety Report 7953982-5 (Version None)
Quarter: 2011Q4

REPORT INFORMATION
  Report Type: 
  Country: None (occurrence: None)
  Receive Date: 20111202
  Receipt Date: 20111202
  Transmission Date: 20120403
  Serious: Yes (Hospitalization)
  Sender: FDA-Public Use
  Company Number: None

PATIENT
  Age: 76 Year
  Sex: Female
  Weight: 68.038 kg

DRUGS (1)
  1. BIDIL [Suspect]
     Indication: HYPERTENSION
     Dosage: 1 TABLET
     Route: 048

REACTIONS (3)
  - DIZZINESS [None]
  - VISION BLURRED [None]
  - FALL [None]
